FAERS Safety Report 25844988 (Version 1)
Quarter: 2025Q3

REPORT INFORMATION
  Report Type: Spontaneous
  Country: MX (occurrence: MX)
  Receive Date: 20250925
  Receipt Date: 20250925
  Transmission Date: 20251021
  Serious: Yes (Hospitalization)
  Sender: GE HEALTHCARE
  Company Number: MX-GE HEALTHCARE-2025CSU013084

PATIENT
  Age: 61 Year
  Sex: Male
  Weight: 89 kg

DRUGS (1)
  1. OMNIPAQUE [Suspect]
     Active Substance: IOHEXOL
     Indication: Computerised tomogram abdomen
     Route: 065
     Dates: start: 20250908, end: 20250908

REACTIONS (9)
  - Hypophagia [Unknown]
  - Back pain [Unknown]
  - Dry mouth [Unknown]
  - Fatigue [Unknown]
  - Tachycardia [Unknown]
  - Oxygen saturation decreased [Unknown]
  - Vomiting [Unknown]
  - Nausea [Unknown]
  - Chills [Unknown]

NARRATIVE: CASE EVENT DATE: 20250908
